FAERS Safety Report 25608056 (Version 1)
Quarter: 2025Q3

REPORT INFORMATION
  Report Type: Spontaneous
  Country: JP (occurrence: JP)
  Receive Date: 20250725
  Receipt Date: 20250725
  Transmission Date: 20251021
  Serious: Yes (Hospitalization)
  Sender: BEXIMCO PHARMACEUTICALS
  Company Number: JP-BEXIMCO-2025BEX00042

PATIENT
  Age: 50 Year
  Sex: Male

DRUGS (10)
  1. CARBIDOPA [Suspect]
     Active Substance: CARBIDOPA
     Indication: Parkinson^s disease
     Dosage: 864 MG, 1X/DAY, 16-HOUR LCIG INFUSION
  2. CARBIDOPA [Suspect]
     Active Substance: CARBIDOPA
     Dosage: 1056 MG, 1X/DAY, 16-HOUR LCIG INFUSION
  3. CARBIDOPA [Suspect]
     Active Substance: CARBIDOPA
     Dosage: LCIG WAS INCREASED TO 1248 MG/DAY
  4. CARBIDOPA [Suspect]
     Active Substance: CARBIDOPA
     Dosage: LCIG INFUSION WAS SHORTENED FROM 24 TO 16 H
  5. LEVODOPA [Suspect]
     Active Substance: LEVODOPA
     Indication: Parkinson^s disease
     Dosage: 864 MG, 1X/DAY, 16-HOUR LCIG INFUSION
  6. LEVODOPA [Suspect]
     Active Substance: LEVODOPA
     Dosage: 1056 MG, 1X/DAY, 16-HOUR LCIG INFUSION
  7. LEVODOPA [Suspect]
     Active Substance: LEVODOPA
     Dosage: LCIG WAS INCREASED TO 1248 MG/DAY
  8. LEVODOPA [Suspect]
     Active Substance: LEVODOPA
     Dosage: LCIG INFUSION WAS SHORTENED FROM 24 TO 16 H
  9. ROTIGOTINE [Suspect]
     Active Substance: ROTIGOTINE
     Indication: Parkinson^s disease
     Dosage: 6 MG, 1X/DAY
  10. ROTIGOTINE [Suspect]
     Active Substance: ROTIGOTINE
     Dosage: 12 MG, 1X/DAY, SELF-DOUBLING HIS ROTIGOTINE DOSE

REACTIONS (1)
  - Delusion of replacement [Recovered/Resolved]
